FAERS Safety Report 8849910 (Version 2)
Quarter: 2012Q4

REPORT INFORMATION
  Report Type: 
  Country: IT (occurrence: IT)
  Receive Date: 20121019
  Receipt Date: 20121019
  Transmission Date: 20130627
  Serious: Yes (Hospitalization)
  Sender: FDA-Public Use
  Company Number: IT-ROCHE-1141688

PATIENT
  Age: 43 Year
  Sex: Female

DRUGS (1)
  1. TORADOL [Suspect]
     Indication: PAIN IN EXTREMITY
     Dosage: 30 mg/ml
     Route: 030
     Dates: start: 20120921, end: 20120921

REACTIONS (2)
  - Pruritus [Recovered/Resolved]
  - Rash papular [Recovered/Resolved]
